FAERS Safety Report 5580197-0 (Version None)
Quarter: 2008Q1

REPORT INFORMATION
  Report Type: 
  Country: None (occurrence: None)
  Receive Date: 20080103
  Receipt Date: 20071227
  Transmission Date: 20080703
  Serious: Yes (Death, Life-Threatening, Hospitalization, Other)
  Sender: FDA-Public Use
  Company Number: US-ROCHE-538721

PATIENT
  Age: 83 Year
  Sex: Female

DRUGS (2)
  1. BONIVA [Suspect]
     Indication: BONE DISORDER
     Dosage: PATEINT TOOK 2 TOTAL DOSES IN AUG AND SEPT.
     Route: 065
     Dates: start: 20070801, end: 20070901
  2. PREDNISONE TAB [Suspect]
     Indication: ARTERITIS
     Route: 065
     Dates: start: 20070901

REACTIONS (4)
  - ARTERITIS [None]
  - COLONIC OBSTRUCTION [None]
  - INFECTION [None]
  - PNEUMONIA [None]
